FAERS Safety Report 8293393-9 (Version None)
Quarter: 2012Q2

REPORT INFORMATION
  Report Type: 
  Country: None (occurrence: None)
  Receive Date: 20120417
  Receipt Date: 20120217
  Transmission Date: 20120825
  Serious: No
  Sender: FDA-Public Use
  Company Number: US-ASTRAZENECA-2012SE04929

PATIENT
  Age: 53 Year
  Sex: Female

DRUGS (14)
  1. NEXIUM [Suspect]
     Route: 048
  2. ZOMIG [Suspect]
     Route: 045
  3. SUMATRIPTAN [Concomitant]
  4. CRESTOR [Suspect]
     Route: 048
  5. LISINOPRIL [Concomitant]
  6. SINGULAIR [Concomitant]
  7. SAVELLA [Concomitant]
  8. VITAMIN D [Concomitant]
  9. ZANAFLEX [Concomitant]
  10. ZOMIG [Suspect]
     Route: 048
  11. ATELVIA [Concomitant]
  12. ZOLPIDEM [Concomitant]
  13. ATENOLOL [Concomitant]
  14. DEXILANT [Concomitant]

REACTIONS (5)
  - GASTROOESOPHAGEAL REFLUX DISEASE [None]
  - VOMITING [None]
  - URTICARIA [None]
  - UNDERDOSE [None]
  - MIGRAINE [None]
